FAERS Safety Report 16459035 (Version 1)
Quarter: 2019Q2

REPORT INFORMATION
  Report Type: Spontaneous
  Country: US (occurrence: US)
  Receive Date: 20190620
  Receipt Date: 20190620
  Transmission Date: 20190711
  Serious: No
  Sender: FDA-Public Use
  Company Number: US-THERAPEUTICSMD-2019TMD01106

PATIENT
  Age: 66 Year
  Sex: Female
  Weight: 107.94 kg

DRUGS (2)
  1. IMVEXXY [Suspect]
     Active Substance: ESTRADIOL
     Indication: VAGINAL DISORDER
  2. IMVEXXY [Suspect]
     Active Substance: ESTRADIOL
     Indication: VULVOVAGINAL DRYNESS
     Dosage: 10 ?G, EVERY OTHER EVENING AT 1PM WHILE UPRIGHT AND ACTIVE
     Route: 067
     Dates: start: 20190521

REACTIONS (4)
  - Product residue present [Unknown]
  - Vaginal discharge [Not Recovered/Not Resolved]
  - Product administration error [Recovered/Resolved]
  - Off label use [Not Recovered/Not Resolved]

NARRATIVE: CASE EVENT DATE: 20190521
